FAERS Safety Report 5267150-1 (Version None)
Quarter: 2007Q1

REPORT INFORMATION
  Report Type: 
  Country: None (occurrence: None)
  Receive Date: 20070316
  Receipt Date: 20070313
  Transmission Date: 20070707
  Serious: Yes (Life-Threatening, Other)
  Sender: FDA-Public Use
  Company Number: GB-AVENTIS-200712208GDDC

PATIENT
  Age: 13 Year
  Sex: Female

DRUGS (1)
  1. DESMOTABS [Suspect]
     Indication: ENURESIS
     Route: 048
     Dates: start: 20040704, end: 20070213

REACTIONS (1)
  - HYPERKALAEMIA [None]
